FAERS Safety Report 5745611-6 (Version None)
Quarter: 2008Q2

REPORT INFORMATION
  Report Type: 
  Country: None (occurrence: None)
  Receive Date: 20080519
  Receipt Date: 20080225
  Transmission Date: 20081010
  Serious: No
  Sender: FDA-Public Use
  Company Number: TPA2008A00168

PATIENT
  Age: 57 Year
  Sex: Female
  Weight: 68.0396 kg

DRUGS (11)
  1. ROZEREM [Suspect]
     Indication: INITIAL INSOMNIA
     Dosage: 1 IN 1 D, PER ORAL
     Route: 048
     Dates: start: 20070818, end: 20070820
  2. ROZEREM [Suspect]
     Indication: MIDDLE INSOMNIA
     Dosage: 1 IN 1 D, PER ORAL
     Route: 048
     Dates: start: 20070818, end: 20070820
  3. OSCAL + D (COLECALCIFEROL, CALCIUM) [Concomitant]
  4. CENTRUM SILVER (ASCORBIC ACID, TOCOPHERYL ACETATE, RETINOL, ZINC, CALC [Concomitant]
  5. GLUCOSASMINE (GLUCOSAMINE) [Concomitant]
  6. CHONDROITIN (ALL OTHER THERAPEUTIC PRODUCTS) [Concomitant]
  7. FLU SHOT (INFLUENZA VACCINE) [Concomitant]
  8. AIRBORNE (ALL OTHER THERAPEUTIC PRODUCTS) [Concomitant]
  9. TAGAMENT HB 200 (CIMETIDINE) [Concomitant]
  10. REQUIP [Concomitant]
  11. MELATONIN (MELATONIN) [Concomitant]

REACTIONS (1)
  - SLEEP TERROR [None]
